FAERS Safety Report 13872988 (Version 1)
Quarter: 2017Q3

REPORT INFORMATION
  Report Type: Spontaneous
  Country: US (occurrence: US)
  Receive Date: 20170816
  Receipt Date: 20170816
  Transmission Date: 20171127
  Serious: No
  Sender: FDA-Public Use
  Company Number: US-PFIZER INC-2017347573

PATIENT
  Sex: Female

DRUGS (4)
  1. ONDANSETRON [Suspect]
     Active Substance: ONDANSETRON
     Dosage: 4 MG, UNK (1-2 TABS EVERY 8 HOURS)
  2. MORPHINE SULFATE. [Suspect]
     Active Substance: MORPHINE SULFATE
     Dosage: 30 MG, 3X/DAY
  3. LORAZEPAM. [Suspect]
     Active Substance: LORAZEPAM
     Dosage: 1 MG, AS NEEDED (BID)
  4. METHOTREXATE SODIUM. [Suspect]
     Active Substance: METHOTREXATE SODIUM
     Dosage: 15 MG, WEEKLY

REACTIONS (20)
  - Hypoaesthesia [Unknown]
  - Depression [Unknown]
  - Insomnia [Unknown]
  - Heart rate increased [Unknown]
  - Fibromyalgia [Unknown]
  - Joint swelling [Unknown]
  - Arthralgia [Unknown]
  - C-reactive protein increased [Unknown]
  - Nodal osteoarthritis [Unknown]
  - Arthritis [Unknown]
  - Dry mouth [Unknown]
  - Musculoskeletal stiffness [Unknown]
  - Neck pain [Unknown]
  - Leukocytosis [Unknown]
  - Thrombocytosis [Unknown]
  - Condition aggravated [Unknown]
  - Back pain [Unknown]
  - Alopecia [Unknown]
  - Myalgia [Unknown]
  - Gastrointestinal motility disorder [Unknown]
